FAERS Safety Report 10419893 (Version 1)
Quarter: 2014Q2

REPORT INFORMATION
  Report Type: Spontaneous
  Country: US (occurrence: None)
  Receive Date: 20140627
  Receipt Date: 20140627
  Transmission Date: 20141212
  Serious: Yes (Other)
  Sender: FDA-Public Use
  Company Number: CABO-14004150

PATIENT
  Age: 32 Year
  Sex: Female

DRUGS (10)
  1. COMETRIQ (CABOZANTINIB) CAPSULE [Suspect]
     Indication: ALVEOLAR SOFT PART SARCOMA METASTATIC
     Route: 048
     Dates: start: 20140312, end: 20140408
  2. NEXIUM (ESOMEPRAZOLE SODIUM) [Concomitant]
  3. PROMETHAZINE [Concomitant]
  4. OXYCONTIN (OXYCODONE HYDROCHLORIDE) [Concomitant]
  5. LEVOTHYROXINE [Concomitant]
  6. OXYCODONE [Concomitant]
  7. METOPROLOL [Concomitant]
  8. ZOFRAN (ONDANSETRON HYDROCHLORIDE) [Concomitant]
  9. ZOFRAN (ONDANSETRON HYDROCHLORIDE) [Concomitant]
  10. LAMICTAL (LAMOTRIGINE) [Concomitant]

REACTIONS (6)
  - Enzyme level increased [None]
  - Gallbladder operation [None]
  - Decreased appetite [None]
  - Nausea [None]
  - Diarrhoea [None]
  - Off label use [None]
